FAERS Safety Report 7973393-6 (Version None)
Quarter: 2011Q4

REPORT INFORMATION
  Report Type: 
  Country: None (occurrence: None)
  Receive Date: 20111213
  Receipt Date: 20111014
  Transmission Date: 20120403
  Serious: No
  Sender: FDA-Public Use
  Company Number: US-AMGEN-USASP2011053296

PATIENT
  Sex: Female

DRUGS (3)
  1. ARANESP [Suspect]
     Indication: ANAEMIA
     Dosage: 200 MUG, QWK
     Dates: start: 20110901
  2. RIBAVIRIN FPO [Concomitant]
     Dosage: 2 MG, UNK
  3. PEGASYS [Concomitant]

REACTIONS (1)
  - HAEMOGLOBIN DECREASED [None]
